FAERS Safety Report 15862710 (Version 1)
Quarter: 2019Q1

REPORT INFORMATION
  Report Type: Spontaneous
  Country: US (occurrence: US)
  Receive Date: 20190124
  Receipt Date: 20190124
  Transmission Date: 20190417
  Serious: Yes (Hospitalization)
  Sender: FDA-Public Use
  Company Number: None

PATIENT
  Age: 64 Year
  Sex: Male

DRUGS (3)
  1. HUMIRA [Suspect]
     Active Substance: ADALIMUMAB
     Indication: HIDRADENITIS
     Dosage: ?          OTHER FREQUENCY:ONCE EVERY WEEK;?
     Route: 058
     Dates: start: 20180605
  2. MELOXICAAM [Concomitant]
     Dates: start: 20180531
  3. NAPROXEN. [Concomitant]
     Active Substance: NAPROXEN
     Dates: start: 20180531

REACTIONS (5)
  - Palpitations [None]
  - Dehydration [None]
  - Gastrooesophageal reflux disease [None]
  - Sleep apnoea syndrome [None]
  - Chest pain [None]

NARRATIVE: CASE EVENT DATE: 20181101
